FAERS Safety Report 8574626-8 (Version None)
Quarter: 2012Q3

REPORT INFORMATION
  Report Type: 
  Country: None (occurrence: None)
  Receive Date: 20120807
  Receipt Date: 20120802
  Transmission Date: 20120928
  Serious: Yes (Other)
  Sender: FDA-Public Use
  Company Number: FR-AMGEN-FRASP2012039016

PATIENT
  Age: 73 Year
  Sex: Female
  Weight: 65 kg

DRUGS (2)
  1. PROLIA [Suspect]
     Indication: OSTEOPOROSIS
     Dosage: UNK
     Route: 058
     Dates: start: 20120510
  2. METHOTREXATE [Concomitant]
     Dosage: UNK
     Route: 058
     Dates: start: 20090826

REACTIONS (3)
  - HYPERTENSION [None]
  - DIZZINESS POSTURAL [None]
  - DYSSTASIA [None]
